FAERS Safety Report 20633633 (Version 1)
Quarter: 2022Q1

REPORT INFORMATION
  Report Type: Spontaneous
  Country: US (occurrence: US)
  Receive Date: 20220324
  Receipt Date: 20220324
  Transmission Date: 20220423
  Serious: No
  Sender: FDA-Public Use
  Company Number: US-TEVA-2022-US-2011412

PATIENT
  Age: 31 Year
  Sex: Male

DRUGS (1)
  1. LORAZEPAM [Suspect]
     Active Substance: LORAZEPAM
     Indication: Anxiety
     Dosage: 1 MG IN THE AFTERNOON AND 1.5 MG AT NIGHT
     Route: 065

REACTIONS (1)
  - Drug hypersensitivity [Recovered/Resolved]
